FAERS Safety Report 6131199-7 (Version None)
Quarter: 2009Q1

REPORT INFORMATION
  Report Type: 
  Country: None (occurrence: None)
  Receive Date: 20090325
  Receipt Date: 20090319
  Transmission Date: 20090719
  Serious: No
  Sender: FDA-Public Use
  Company Number: BE-ASTRAZENECA-2009AC00756

PATIENT
  Age: 77 Year
  Sex: Female

DRUGS (5)
  1. NOLVADEX [Suspect]
     Dates: start: 20081001
  2. SERLAIN [Concomitant]
  3. TRAZOLAN [Concomitant]
  4. LORMETAZEPAM [Concomitant]
  5. SERENASE [Concomitant]

REACTIONS (5)
  - COUGH [None]
  - FATIGUE [None]
  - HOT FLUSH [None]
  - MALAISE [None]
  - RESPIRATORY DISTRESS [None]
